FAERS Safety Report 18767794 (Version 3)
Quarter: 2021Q1

REPORT INFORMATION
  Report Type: Spontaneous
  Country: US (occurrence: US)
  Receive Date: 20210121
  Receipt Date: 20210210
  Transmission Date: 20210419
  Serious: No
  Sender: FDA-Public Use
  Company Number: US-GW PHARMA-202101USGW00139

PATIENT

DRUGS (16)
  1. CLONAZEPAM. [Concomitant]
     Active Substance: CLONAZEPAM
     Dosage: TAKE 1 TABLET BY MOUTH TWICE DAILY FOR 3 DAYS, THEN DECREASE TO NIGHTLY FOR 3 DAYS, THEN STOP
     Route: 048
  2. EPIDIOLEX [Suspect]
     Active Substance: CANNABIDIOL
     Indication: LENNOX-GASTAUT SYNDROME
     Dosage: 5 MG/KG/DAY, 140 MILLIGRAM, BID
     Route: 048
     Dates: start: 20201001, end: 20210119
  3. VALPROIC ACID. [Suspect]
     Active Substance: VALPROIC ACID
     Indication: PRODUCT USED FOR UNKNOWN INDICATION
     Dosage: UNK
     Route: 065
  4. CLONAZEPAM. [Concomitant]
     Active Substance: CLONAZEPAM
     Indication: SEIZURE
     Dosage: TAKE 1 TABLET BY MOUTH 15 MINUTES BEFORE MRI, MAY REPEAT ONCE MORE, CAN TAKE 1 TABLET AS NEEDED
     Route: 048
  5. MEDROXYPROGESTERONE [Suspect]
     Active Substance: MEDROXYPROGESTERONE
     Indication: PRODUCT USED FOR UNKNOWN INDICATION
     Dosage: INJECT 1 SYRINGE EVERY 90 DAYS
     Route: 030
     Dates: end: 202101
  6. CLOBAZAM. [Suspect]
     Active Substance: CLOBAZAM
     Indication: PRODUCT USED FOR UNKNOWN INDICATION
     Dosage: 20 MILLIGRAM, TID
     Route: 048
  7. BUTALBITAL, ACETAMINOPHEN, AND CAFFEINE [Concomitant]
     Active Substance: ACETAMINOPHEN\BUTALBITAL\CAFFEINE
     Indication: HEADACHE
     Dosage: 1 DOSAGE FORM, PRN (1 DOSAGE FORM, Q6H AS NEEDED)
     Route: 048
  8. LORAZEPAM. [Concomitant]
     Active Substance: LORAZEPAM
     Indication: SEIZURE CLUSTER
     Dosage: 2 MILLIGRAM, PRN  (ONE TABLET BY MOUTH AS NEEDED FOR SEIZURE CLUSTER, MAY REPEAT IN 30 MINUTES IF SE
     Route: 048
  9. ZONISAMIDE. [Concomitant]
     Active Substance: ZONISAMIDE
     Indication: PRODUCT USED FOR UNKNOWN INDICATION
     Dosage: UNK
     Route: 065
  10. ACETYLCYSTEINE. [Concomitant]
     Active Substance: ACETYLCYSTEINE
     Indication: PRODUCT USED FOR UNKNOWN INDICATION
     Dosage: 60 MILLILITER, BID (30 ML, PATIENT TO DILUTE 15 ML WITH 4 TIMES ITS VOLUME WITH DIET SODA, 60 ML BY
     Route: 048
  11. BUTALBITAL, ACETAMINOPHEN, AND CAFFEINE [Concomitant]
     Active Substance: ACETAMINOPHEN\BUTALBITAL\CAFFEINE
     Indication: MIGRAINE
  12. LEVOTHYROXINE. [Concomitant]
     Active Substance: LEVOTHYROXINE
     Indication: PRODUCT USED FOR UNKNOWN INDICATION
     Dosage: 125 MICROGRAM, QD (STRENGTH: 0.125 MG, 1 TABLET BY MOUTH DAILY)
     Route: 048
  13. DEPAKOTE [Suspect]
     Active Substance: DIVALPROEX SODIUM
     Indication: PRODUCT USED FOR UNKNOWN INDICATION
     Dosage: 500 MILLIGRAM, BID
     Route: 048
  14. ATOVAQUONE PROGUANIL [Concomitant]
     Active Substance: ATOVAQUONE\PROGUANIL
     Indication: PRODUCT USED FOR UNKNOWN INDICATION
     Dosage: 1 DOSAGE FORM, QD (250/100 TABS, TAKE 1 TABLET BY MOUTH EVERY DAY AS DIRECTED)
     Route: 048
  15. CLONAZEPAM. [Concomitant]
     Active Substance: CLONAZEPAM
     Indication: PRODUCT USED FOR UNKNOWN INDICATION
     Dosage: 0.5 MILLIGRAM, QD (DISSOLVE 1 TABLET BY MOUTH DAILY, 30 MINUTES PRIOR TO MRI, MAY REPEAT ONCE)
     Route: 048
  16. HAVRIX [Concomitant]
     Active Substance: HEPATITIS A VIRUS STRAIN HM175 ANTIGEN (FORMALDEHYDE INACTIVATED)
     Indication: PRODUCT USED FOR UNKNOWN INDICATION
     Dosage: STRENGTH: 1440 U/ML SYRINGE (ADULT), ADMINISTER 1 ML IN THE MUSCLES AS DIRECTED
     Route: 030

REACTIONS (3)
  - Drug ineffective [Unknown]
  - Hepatic enzyme increased [Recovering/Resolving]
  - Anticonvulsant drug level increased [Unknown]

NARRATIVE: CASE EVENT DATE: 20201103
